FAERS Safety Report 5781242-X (Version None)
Quarter: 2008Q2

REPORT INFORMATION
  Report Type: 
  Country: None (occurrence: None)
  Receive Date: 20080618
  Receipt Date: 20080606
  Transmission Date: 20081010
  Serious: Yes (Hospitalization)
  Sender: FDA-Public Use
  Company Number: 2008AL006542

PATIENT
  Sex: Female

DRUGS (1)
  1. DIGOXIN             (AMIDE) [Suspect]

REACTIONS (1)
  - HEART RATE DECREASED [None]
